FAERS Safety Report 23250794 (Version 1)
Quarter: 2023Q4

REPORT INFORMATION
  Report Type: Spontaneous
  Country: US (occurrence: None)
  Receive Date: 20231130
  Receipt Date: 20231130
  Transmission Date: 20240109
  Serious: Yes (Disabling)
  Sender: FDA-Public Use
  Company Number: None

PATIENT
  Age: 63 Year
  Sex: Female
  Weight: 95.4 kg

DRUGS (2)
  1. VRAYLAR [Suspect]
     Active Substance: CARIPRAZINE
     Indication: Adjuvant therapy
     Dosage: OTHER QUANTITY : 1 CAPSULE(S);?FREQUENCY : DAILY;?
     Route: 048
     Dates: start: 20220317, end: 20221101
  2. VRAYLAR [Suspect]
     Active Substance: CARIPRAZINE
     Indication: Depression

REACTIONS (14)
  - Therapeutic product effect decreased [None]
  - Restlessness [None]
  - Agitation [None]
  - Therapy cessation [None]
  - Salivary hypersecretion [None]
  - Drooling [None]
  - Tardive dyskinesia [None]
  - Muscular weakness [None]
  - Parkinsonian rest tremor [None]
  - Gait disturbance [None]
  - Dysphagia [None]
  - Bradykinesia [None]
  - Choking sensation [None]
  - Parkinsonism [None]

NARRATIVE: CASE EVENT DATE: 20221101
